FAERS Safety Report 9060360 (Version 2)
Quarter: 2013Q1

REPORT INFORMATION
  Report Type: Spontaneous
  Country: CA (occurrence: CA)
  Receive Date: 20130212
  Receipt Date: 20130313
  Transmission Date: 20140127
  Serious: Yes (Other)
  Sender: FDA-Public Use
  Company Number: PHHY2013CA009530

PATIENT
  Sex: Female

DRUGS (1)
  1. DIAZEPAM [Suspect]
     Indication: PREOPERATIVE CARE

REACTIONS (3)
  - Blood pressure increased [Unknown]
  - Hot flush [Unknown]
  - Nausea [Unknown]
